FAERS Safety Report 7772055-8 (Version None)
Quarter: 2011Q3

REPORT INFORMATION
  Report Type: 
  Country: None (occurrence: None)
  Receive Date: 20110922
  Receipt Date: 20100920
  Transmission Date: 20111222
  Serious: Yes (Hospitalization, Other)
  Sender: FDA-Public Use
  Company Number: US-ASTRAZENECA-2007UW06069

PATIENT
  Age: 15539 Day
  Sex: Male
  Weight: 97.1 kg

DRUGS (16)
  1. THORAZINE [Concomitant]
     Dosage: 50 TO 100 MG
     Dates: start: 20060101
  2. RISPERDAL [Concomitant]
     Route: 048
     Dates: start: 20050408
  3. ATENOLOL [Concomitant]
     Route: 048
     Dates: start: 20050101
  4. TRILAFON/TRIAVIL [Concomitant]
     Dates: start: 20070801, end: 20080801
  5. TRAZODONE HYDROCHLORIDE [Concomitant]
     Route: 048
     Dates: start: 20050107
  6. SEROQUEL [Suspect]
     Indication: INSOMNIA
     Route: 048
     Dates: start: 20000701, end: 20040801
  7. HALDOL [Concomitant]
     Dates: start: 19940101
  8. TRILAFON/TRIAVIL [Concomitant]
     Dates: start: 20060901
  9. ZIPRASIDONE HYDROCHLORIDE [Concomitant]
     Dates: start: 20050106
  10. LOSARTAN POTASSIUM [Concomitant]
     Dates: start: 20050107
  11. SEROQUEL [Suspect]
     Route: 048
     Dates: start: 20030101
  12. COZAAR [Concomitant]
     Route: 048
     Dates: start: 20050101
  13. METFORMIN [Concomitant]
     Route: 048
     Dates: start: 20020101
  14. REMERON [Concomitant]
     Route: 048
     Dates: start: 20050107
  15. ABILIFY [Concomitant]
  16. ASPIRIN [Concomitant]
     Route: 048
     Dates: start: 20050101

REACTIONS (4)
  - DIABETES MELLITUS INADEQUATE CONTROL [None]
  - BLOOD CHOLESTEROL INCREASED [None]
  - BLOOD GLUCOSE INCREASED [None]
  - TYPE 2 DIABETES MELLITUS [None]
